FAERS Safety Report 20756277 (Version 2)
Quarter: 2022Q2

REPORT INFORMATION
  Report Type: Spontaneous
  Country: SK (occurrence: SK)
  Receive Date: 20220427
  Receipt Date: 20220505
  Transmission Date: 20220721
  Serious: Yes (Death, Life-Threatening, Other)
  Sender: FDA-Public Use
  Company Number: SK-CELLTRION INC.-2022SK005176

PATIENT

DRUGS (17)
  1. RITUXIMAB [Suspect]
     Active Substance: RITUXIMAB
     Indication: Diffuse large B-cell lymphoma
     Dosage: 3 CYCLES OF R-CHOP (1ST LINE)
  2. RITUXIMAB [Suspect]
     Active Substance: RITUXIMAB
     Dosage: 3 CYCLES OF THE R-CHOEP (2ND LINE)
  3. RITUXIMAB [Suspect]
     Active Substance: RITUXIMAB
     Dosage: 2 CYCLES OF R-DHAP (3RD LINE)
     Dates: start: 202104
  4. RITUXIMAB [Suspect]
     Active Substance: RITUXIMAB
     Dosage: R-GDP REGIMEN (4TH LINE)
  5. CYCLOPHOSPHAMIDE\DOXORUBICIN\PREDNISONE\VINCRISTINE [Suspect]
     Active Substance: CYCLOPHOSPHAMIDE\DOXORUBICIN\PREDNISONE\VINCRISTINE
     Indication: Diffuse large B-cell lymphoma
     Dosage: 2 CYCLES OF CHOP (1ST LINE)
  6. CYCLOPHOSPHAMIDE\DOXORUBICIN\PREDNISONE\RITUXIMAB\VINCRISTINE [Suspect]
     Active Substance: CYCLOPHOSPHAMIDE\DOXORUBICIN\PREDNISONE\RITUXIMAB\VINCRISTINE
     Indication: Diffuse large B-cell lymphoma
     Dosage: 3 CYCLES OF R-CHOP (1ST LINE)
  7. CISPLATIN [Suspect]
     Active Substance: CISPLATIN
     Indication: Diffuse large B-cell lymphoma
     Dosage: 2 CYCLES OF R-DHAP (3RD LINE)
     Dates: start: 202104
  8. CISPLATIN [Suspect]
     Active Substance: CISPLATIN
     Indication: Diffuse large B-cell lymphoma
     Dosage: E R-GDP REGIMEN (4TH LINE)
  9. FLUDARABINE [Suspect]
     Active Substance: FLUDARABINE PHOSPHATE
     Indication: Lymphodepletion
     Dosage: WAS ADDED ON DAY 7 OF HOSPITALISATION
  10. CYCLOPHOSPHAMIDE [Suspect]
     Active Substance: CYCLOPHOSPHAMIDE
     Indication: Lymphodepletion
     Dosage: WAS ADDED ON DAY 7 OF HOSPITALISATION
  11. KYMRIAH [Concomitant]
     Active Substance: TISAGENLECLEUCEL
     Dosage: WAS ADDED ON DAY 7 OF HOSPITALISATION
  12. CYTARABINE [Suspect]
     Active Substance: CYTARABINE
  13. DEXAMETHASONE [Suspect]
     Active Substance: DEXAMETHASONE
  14. RITUXIMAB [Suspect]
     Active Substance: RITUXIMAB
  15. DEXAMETHASONE [Suspect]
     Active Substance: DEXAMETHASONE
  16. GEMCITABINE [Suspect]
     Active Substance: GEMCITABINE
  17. RITUXIMAB [Suspect]
     Active Substance: RITUXIMAB

REACTIONS (6)
  - Septic shock [Fatal]
  - Diffuse large B-cell lymphoma refractory [Fatal]
  - Cytokine release syndrome [Unknown]
  - Immune effector cell-associated neurotoxicity syndrome [Unknown]
  - Multiple organ dysfunction syndrome [Unknown]
  - Pulmonary embolism [Unknown]
